FAERS Safety Report 7074691-3 (Version None)
Quarter: 2010Q4

REPORT INFORMATION
  Report Type: 
  Country: None (occurrence: None)
  Receive Date: 20101021
  Receipt Date: 20101013
  Transmission Date: 20110411
  Serious: Yes (Death)
  Sender: FDA-Public Use
  Company Number: 020316

PATIENT
  Age: 45 Year
  Sex: Male

DRUGS (1)
  1. KEPPRA [Suspect]
     Dosage: (750 MG)

REACTIONS (1)
  - DEATH [None]
